FAERS Safety Report 6017279-5 (Version None)
Quarter: 2008Q4

REPORT INFORMATION
  Report Type: 
  Country: None (occurrence: None)
  Receive Date: 20081219
  Receipt Date: 20081203
  Transmission Date: 20090506
  Serious: No
  Sender: FDA-Public Use
  Company Number: 8036444

PATIENT
  Age: 40 Year
  Sex: Male
  Weight: 93 kg

DRUGS (3)
  1. KEPPRA [Suspect]
     Dosage: 1500 MG 2/D PO
     Route: 048
     Dates: start: 20060724
  2. KEPPRA [Suspect]
     Dosage: 3500 MG /D PO
     Route: 048
  3. CARBABETA [Suspect]
     Dosage: 1400 MG /D PO
     Route: 048
     Dates: start: 20051001

REACTIONS (4)
  - COORDINATION ABNORMAL [None]
  - DEPRESSED LEVEL OF CONSCIOUSNESS [None]
  - DISTURBANCE IN ATTENTION [None]
  - MEMORY IMPAIRMENT [None]
